FAERS Safety Report 6093739-6 (Version None)
Quarter: 2009Q1

REPORT INFORMATION
  Report Type: 
  Country: None (occurrence: None)
  Receive Date: 20090219
  Receipt Date: 20081230
  Transmission Date: 20090719
  Serious: No
  Sender: FDA-Public Use
  Company Number: WAES 0808USA05331

PATIENT
  Age: 36 Year
  Sex: Male

DRUGS (1)
  1. JANUVIA [Suspect]
     Dosage: 100 MG/BID/PO
     Route: 048
     Dates: start: 20071001, end: 20080101

REACTIONS (3)
  - NO ADVERSE EVENT [None]
  - OFF LABEL USE [None]
  - OVERDOSE [None]
